FAERS Safety Report 6850738-1 (Version None)
Quarter: 2010Q3

REPORT INFORMATION
  Report Type: 
  Country: None (occurrence: None)
  Receive Date: 20100716
  Receipt Date: 20071018
  Transmission Date: 20110219
  Serious: No
  Sender: FDA-Public Use
  Company Number: US-PFIZER INC-2007090309

PATIENT
  Sex: Female

DRUGS (3)
  1. CHANTIX [Suspect]
  2. CARDIOVASCULAR SYSTEM DRUGS [Concomitant]
     Indication: BLOOD PRESSURE ABNORMAL
  3. ANTI-ASTHMATICS [Concomitant]
     Indication: ASTHMA

REACTIONS (3)
  - CONSTIPATION [None]
  - MIGRAINE [None]
  - VOMITING [None]
